FAERS Safety Report 8038361-7 (Version None)
Quarter: 2012Q1

REPORT INFORMATION
  Report Type: 
  Country: None (occurrence: None)
  Receive Date: 20120111
  Receipt Date: 20111205
  Transmission Date: 20120608
  Serious: No
  Sender: FDA-Public Use
  Company Number: US-AMGEN-USASP2011056765

PATIENT
  Age: 59 Year
  Sex: Male

DRUGS (7)
  1. MOBIC [Concomitant]
     Dosage: 15 MG, QD
     Route: 048
  2. TOPAMAX [Concomitant]
     Dosage: 50 MG, QD
     Route: 048
  3. COREG [Concomitant]
     Dosage: 12 MG, BID
     Route: 048
  4. FLOMAX [Concomitant]
     Dosage: 0.5 MG, 2 TIMES/WK
     Route: 048
  5. NORVASC [Concomitant]
     Dosage: 5 MG, QD
     Route: 048
  6. ENBREL [Suspect]
     Indication: PSORIASIS
     Dosage: 50 MG, 2 TIMES/WK
     Route: 058
     Dates: start: 20100914
  7. ZYRTEC [Concomitant]
     Dosage: 10 MG, QD
     Route: 048

REACTIONS (1)
  - DRUG INEFFECTIVE [None]
